FAERS Safety Report 6229002-X (Version None)
Quarter: 2009Q2

REPORT INFORMATION
  Report Type: 
  Country: None (occurrence: None)
  Receive Date: 20090615
  Receipt Date: 20090611
  Transmission Date: 20091009
  Serious: Yes (Other)
  Sender: FDA-Public Use
  Company Number: BE-JNJFOC-20090603768

PATIENT
  Age: 68 Year
  Sex: Male

DRUGS (9)
  1. REMICADE [Suspect]
     Route: 042
  2. REMICADE [Suspect]
     Indication: COLITIS ULCERATIVE
     Route: 042
  3. PENTASA [Concomitant]
     Indication: COLITIS ULCERATIVE
  4. SIMVASTATIN [Concomitant]
  5. CORUNO [Concomitant]
  6. LASIX [Concomitant]
  7. ELTHYRONE [Concomitant]
  8. OMEPRAZOLE [Concomitant]
  9. SOLU-CORTEF [Concomitant]
     Indication: PREMEDICATION
     Route: 042

REACTIONS (3)
  - HYPOTENSION [None]
  - INFUSION RELATED REACTION [None]
  - RESPIRATORY DISTRESS [None]
